FAERS Safety Report 5266893-3 (Version None)
Quarter: 2007Q1

REPORT INFORMATION
  Report Type: 
  Country: None (occurrence: None)
  Receive Date: 20070313
  Receipt Date: 20070228
  Transmission Date: 20070707
  Serious: Yes (Hospitalization)
  Sender: FDA-Public Use
  Company Number: SU-2007-005968

PATIENT

DRUGS (1)
  1. BENICAR [Suspect]
     Indication: DRUG USE FOR UNKNOWN INDICATION
     Dosage: 20 MG QD PO
     Route: 048

REACTIONS (3)
  - DEHYDRATION [None]
  - DIARRHOEA [None]
  - WEIGHT DECREASED [None]
